FAERS Safety Report 24988450 (Version 1)
Quarter: 2025Q1

REPORT INFORMATION
  Report Type: Spontaneous
  Country: US (occurrence: US)
  Receive Date: 20250220
  Receipt Date: 20250220
  Transmission Date: 20250409
  Serious: No
  Sender: VIIV
  Company Number: US-VIIV HEALTHCARE-US2025020565

PATIENT
  Age: 60 Year
  Sex: Female

DRUGS (1)
  1. DOVATO [Suspect]
     Active Substance: DOLUTEGRAVIR SODIUM\LAMIVUDINE
     Indication: Product used for unknown indication
     Route: 048

REACTIONS (2)
  - Quality of life decreased [Unknown]
  - Product dose omission issue [Unknown]

NARRATIVE: CASE EVENT DATE: 20241101
